FAERS Safety Report 7790679-9 (Version None)
Quarter: 2011Q3

REPORT INFORMATION
  Report Type: 
  Country: None (occurrence: None)
  Receive Date: 20110930
  Receipt Date: 20110920
  Transmission Date: 20111222
  Serious: Yes (Other)
  Sender: FDA-Public Use
  Company Number: TR-US-EMD SERONO, INC.-7084068

PATIENT
  Sex: Female

DRUGS (4)
  1. VERMIDON [Concomitant]
     Route: 048
     Dates: start: 20110404, end: 20110829
  2. FERROUS SULFATE TAB [Concomitant]
     Route: 048
     Dates: start: 20110520, end: 20110829
  3. REBIF [Suspect]
     Indication: MULTIPLE SCLEROSIS
     Route: 058
     Dates: start: 20110404, end: 20110829
  4. TOLTERODINE TARTRATE [Concomitant]
     Route: 048
     Dates: start: 20080313, end: 20110829

REACTIONS (1)
  - RHEUMATOID ARTHRITIS [None]
